FAERS Safety Report 9202000 (Version 1)
Quarter: 2013Q1

REPORT INFORMATION
  Report Type: Spontaneous
  Country: IT (occurrence: None)
  Receive Date: 20130327
  Receipt Date: 20130327
  Transmission Date: 20140127
  Serious: Yes (Life-Threatening)
  Sender: FDA-Public Use
  Company Number: FK201300787

PATIENT
  Sex: 0

DRUGS (1)
  1. ROCURONIUM [Suspect]

REACTIONS (2)
  - Accidental exposure to product by child [None]
  - Respiratory arrest [None]
